FAERS Safety Report 25686874 (Version 1)
Quarter: 2025Q3

REPORT INFORMATION
  Report Type: Spontaneous
  Country: US (occurrence: US)
  Receive Date: 20250816
  Receipt Date: 20250816
  Transmission Date: 20251021
  Serious: Yes (Other)
  Sender: AUROBINDO
  Company Number: US-AUROBINDO-AUR-APL-2025-041180

PATIENT
  Age: 56 Year
  Sex: Female

DRUGS (8)
  1. PREDNISONE [Suspect]
     Active Substance: PREDNISONE
     Indication: Organising pneumonia
     Route: 065
  2. PSEUDOEPHEDRINE HYDROCHLORIDE [Suspect]
     Active Substance: PSEUDOEPHEDRINE HYDROCHLORIDE
     Indication: Organising pneumonia
     Route: 065
  3. ALBUTEROL [Suspect]
     Active Substance: ALBUTEROL
     Indication: Organising pneumonia
     Route: 065
  4. BENZONATATE [Suspect]
     Active Substance: BENZONATATE
     Indication: Organising pneumonia
     Route: 065
  5. DOXYCYCLINE [Concomitant]
     Active Substance: DOXYCYCLINE
     Indication: Antibiotic therapy
     Route: 065
  6. DOXYCYCLINE [Concomitant]
     Active Substance: DOXYCYCLINE
     Indication: Organising pneumonia
  7. CEFDINIR [Concomitant]
     Active Substance: CEFDINIR
     Indication: Antibiotic therapy
     Route: 065
  8. CEFDINIR [Concomitant]
     Active Substance: CEFDINIR
     Indication: Organising pneumonia

REACTIONS (1)
  - Drug ineffective [Unknown]
